FAERS Safety Report 19484572 (Version 1)
Quarter: 2021Q3

REPORT INFORMATION
  Report Type: Spontaneous
  Country: ES (occurrence: ES)
  Receive Date: 20210702
  Receipt Date: 20210702
  Transmission Date: 20211014
  Serious: Yes (Hospitalization)
  Sender: FDA-Public Use
  Company Number: ES-SUN PHARMACEUTICAL INDUSTRIES LTD-2021RR-302802

PATIENT
  Age: 76 Year
  Sex: Male

DRUGS (1)
  1. ATORVASTATIN [Suspect]
     Active Substance: ATORVASTATIN
     Indication: DYSLIPIDAEMIA
     Dosage: 0?0?1 ()
     Route: 048
     Dates: start: 20150311, end: 20200507

REACTIONS (1)
  - Necrotising myositis [Recovered/Resolved]

NARRATIVE: CASE EVENT DATE: 20200507
